FAERS Safety Report 5898547-4 (Version None)
Quarter: 2008Q3

REPORT INFORMATION
  Report Type: 
  Country: None (occurrence: None)
  Receive Date: 20080925
  Receipt Date: 20080116
  Transmission Date: 20090109
  Serious: No
  Sender: FDA-Public Use
  Company Number: A0703639A

PATIENT
  Age: 53 Year
  Sex: Female

DRUGS (12)
  1. WELLBUTRIN XL [Suspect]
     Dosage: 150MG TWICE PER DAY
     Route: 048
  2. LEVOTHYROXINE SODIUM [Concomitant]
  3. LISINOPRIL [Concomitant]
  4. ALLEGRA-D [Concomitant]
  5. SINGULAIR [Concomitant]
  6. CRESTOR [Concomitant]
  7. GLUCOTROL [Concomitant]
  8. AMBIEN [Concomitant]
  9. DAYPRO [Concomitant]
  10. SEROQUEL [Concomitant]
  11. TEMAZEPAM [Concomitant]
  12. ALTACE [Concomitant]

REACTIONS (4)
  - BLOOD GLUCOSE INCREASED [None]
  - HOT FLUSH [None]
  - HYPERTENSION [None]
  - INSOMNIA [None]
